FAERS Safety Report 15299908 (Version 1)
Quarter: 2018Q4

REPORT INFORMATION
  Report Type: Spontaneous
  Country: BR (occurrence: BR)
  Receive Date: 20180821
  Receipt Date: 20180821
  Transmission Date: 20190204
  Serious: Yes (Death, Congenital Anomaly, Other)
  Sender: FDA-Public Use
  Company Number: BR-VIVIMED-2016SP021088

PATIENT

DRUGS (3)
  1. METHYLDOPA. [Suspect]
     Active Substance: METHYLDOPA
     Indication: PRODUCT USED FOR UNKNOWN INDICATION
     Dosage: UNK
     Route: 064
  2. BETAMETASONA                       /00008501/ [Suspect]
     Active Substance: BETAMETHASONE
     Indication: PRODUCT USED FOR UNKNOWN INDICATION
     Dosage: UNK
     Route: 064
  3. LOSARTAN. [Suspect]
     Active Substance: LOSARTAN
     Indication: PRODUCT USED FOR UNKNOWN INDICATION
     Dosage: UNK MG, UNK
     Route: 064

REACTIONS (8)
  - Pulmonary haemorrhage [Unknown]
  - Cerebral haemorrhage [Unknown]
  - Cardiac arrest [Fatal]
  - Ductus venosus agenesis [Unknown]
  - Foetal exposure during pregnancy [Unknown]
  - Ischaemia [Unknown]
  - Congenital renal disorder [Unknown]
  - Delayed fontanelle closure [Unknown]
